FAERS Safety Report 9725361 (Version 1)
Quarter: 2013Q4

REPORT INFORMATION
  Report Type: Report from Study
  Country: CL (occurrence: CL)
  Receive Date: 20131203
  Receipt Date: 20131203
  Transmission Date: 20140711
  Serious: Yes (Hospitalization)
  Sender: FDA-Public Use
  Company Number: CL-ROCHE-1312096

PATIENT
  Age: 63 Year
  Sex: Female
  Weight: 75 kg

DRUGS (1)
  1. HERCEPTIN [Suspect]
     Indication: BREAST CANCER
     Route: 042
     Dates: start: 20130909, end: 20131127

REACTIONS (1)
  - Cardiac disorder [Not Recovered/Not Resolved]
